FAERS Safety Report 10248003 (Version 1)
Quarter: 2014Q2

REPORT INFORMATION
  Report Type: Spontaneous
  Country: NL (occurrence: NL)
  Receive Date: 20140619
  Receipt Date: 20140619
  Transmission Date: 20141212
  Serious: Yes (Hospitalization)
  Sender: FDA-Public Use
  Company Number: PHHY2014NL074572

PATIENT
  Sex: Male

DRUGS (3)
  1. CARBAMAZEPINE [Suspect]
     Dosage: 300 MG, BID 200 MG 2DD1 (2 DF QD) AND 100 MG 2DD1
     Dates: start: 20140421
  2. DEPAKINE CHRONO [Concomitant]
     Dosage: 1000 MG, BID
  3. DEPAKINE CHRONO [Concomitant]
     Dosage: DOCE CHANGED

REACTIONS (2)
  - Pneumococcal sepsis [Recovering/Resolving]
  - Interstitial lung disease [Recovering/Resolving]
